FAERS Safety Report 17213873 (Version 1)
Quarter: 2019Q4

REPORT INFORMATION
  Report Type: Spontaneous
  Country: US (occurrence: US)
  Receive Date: 20191230
  Receipt Date: 20191230
  Transmission Date: 20200122
  Serious: No
  Sender: FDA-Public Use
  Company Number: US-SUNOVION-2019SUN005557

PATIENT
  Sex: Female

DRUGS (1)
  1. LATUDA [Suspect]
     Active Substance: LURASIDONE HYDROCHLORIDE
     Indication: BIPOLAR DISORDER
     Dosage: 40 MG
     Route: 048

REACTIONS (9)
  - Anxiety [Unknown]
  - Apathy [Unknown]
  - Nightmare [Unknown]
  - Insomnia [Unknown]
  - Affective disorder [Unknown]
  - Tachyphrenia [Unknown]
  - Irritability [Unknown]
  - Depression [Unknown]
  - Psychomotor hyperactivity [Unknown]
